FAERS Safety Report 14827805 (Version 1)
Quarter: 2018Q2

REPORT INFORMATION
  Report Type: Spontaneous
  Country: UM (occurrence: UM)
  Receive Date: 20180406
  Receipt Date: 20180406
  Transmission Date: 20180711
  Serious: Yes (Disabling, Other)
  Sender: FDA-Public Use
  Company Number: None

PATIENT
  Age: 59 Year
  Sex: Female
  Weight: 81 kg

DRUGS (4)
  1. B12/WOMANS [Concomitant]
  2. VITAMIN/B [Concomitant]
  3. COMPLEX/D3 [Concomitant]
  4. PROTONIX [Suspect]
     Active Substance: PANTOPRAZOLE SODIUM
     Indication: GASTROOESOPHAGEAL REFLUX DISEASE
     Dosage: ?          QUANTITY:1 TABLET(S);?
     Route: 048

REACTIONS (12)
  - Palpitations [None]
  - Fatigue [None]
  - Gait inability [None]
  - Anxiety [None]
  - Vomiting [None]
  - Insomnia [None]
  - Impaired work ability [None]
  - Dizziness [None]
  - Feeling abnormal [None]
  - Headache [None]
  - Tremor [None]
  - Bedridden [None]

NARRATIVE: CASE EVENT DATE: 20170825
